FAERS Safety Report 25019375 (Version 1)
Quarter: 2025Q1

REPORT INFORMATION
  Report Type: Spontaneous
  Country: FR (occurrence: FR)
  Receive Date: 20250227
  Receipt Date: 20250227
  Transmission Date: 20250409
  Serious: Yes (Hospitalization, Other)
  Sender: ANI
  Company Number: FR-ANIPHARMA-2025-FR-000037

PATIENT
  Age: 71 Year
  Sex: Male

DRUGS (10)
  1. CANDESARTAN CILEXETIL [Suspect]
     Active Substance: CANDESARTAN CILEXETIL
     Indication: Arrhythmia
     Route: 048
     Dates: start: 20241216, end: 20241230
  2. BISOPROLOL [Concomitant]
     Active Substance: BISOPROLOL
  3. DAPAGLIFLOZIN [Concomitant]
     Active Substance: DAPAGLIFLOZIN
  4. TOVIAZ [Concomitant]
     Active Substance: FESOTERODINE FUMARATE
  5. POTASSIUM [Concomitant]
     Active Substance: POTASSIUM
  6. EZETIMIBE [Concomitant]
     Active Substance: EZETIMIBE
  7. TAHOR [Concomitant]
     Active Substance: ATORVASTATIN CALCIUM
  8. RIVAROXABAN [Concomitant]
     Active Substance: RIVAROXABAN
  9. EPLERENONE [Concomitant]
     Active Substance: EPLERENONE
  10. LEVOTHYROXINE [Concomitant]
     Active Substance: LEVOTHYROXINE

REACTIONS (6)
  - Acute kidney injury [Recovered/Resolved]
  - Haemorrhoidal haemorrhage [Unknown]
  - Dehydration [Unknown]
  - Hepatic cytolysis [Unknown]
  - Cholestasis [Unknown]
  - Off label use [Recovered/Resolved]

NARRATIVE: CASE EVENT DATE: 20241216
